FAERS Safety Report 13126061 (Version 3)
Quarter: 2017Q1

REPORT INFORMATION
  Report Type: Spontaneous
  Country: ES (occurrence: ES)
  Receive Date: 20170118
  Receipt Date: 20170204
  Transmission Date: 20170428
  Serious: Yes (Hospitalization, Other)
  Sender: FDA-Public Use
  Company Number: ES-TEVA-730337ISR

PATIENT
  Age: 79 Year
  Sex: Female

DRUGS (8)
  1. LEVOFLOXACIN. [Suspect]
     Active Substance: LEVOFLOXACIN
     Indication: PRODUCT USED FOR UNKNOWN INDICATION
     Route: 065
  2. PANTOPRAZOLE [Concomitant]
     Active Substance: PANTOPRAZOLE SODIUM
  3. METFORMIN [Concomitant]
     Active Substance: METFORMIN HYDROCHLORIDE
  4. LEVOTHYROXINE. [Concomitant]
     Active Substance: LEVOTHYROXINE
  5. ANTI-PARKINSON [Concomitant]
     Active Substance: UNSPECIFIED INGREDIENT
  6. ENALAPRIL [Concomitant]
     Active Substance: ENALAPRIL
  7. ATORVASTATIN [Concomitant]
     Active Substance: ATORVASTATIN
  8. ARADOS HCT [Concomitant]

REACTIONS (6)
  - Hip fracture [Unknown]
  - Femur fracture [Unknown]
  - Haematoma [Unknown]
  - Oedema [Unknown]
  - Tendon rupture [Unknown]
  - Tendonitis [Unknown]
